FAERS Safety Report 12083062 (Version 1)
Quarter: 2016Q1

REPORT INFORMATION
  Report Type: Spontaneous
  Country: US (occurrence: None)
  Receive Date: 20160216
  Receipt Date: 20160216
  Transmission Date: 20160526
  Serious: Yes (Other)
  Sender: FDA-Public Use
  Company Number: None

PATIENT
  Age: 30 Year
  Sex: Female
  Weight: 59.88 kg

DRUGS (3)
  1. PRENATAL VITAMINES [Concomitant]
  2. DEXILANT [Concomitant]
     Active Substance: DEXLANSOPRAZOLE
  3. MIRENA [Suspect]
     Active Substance: LEVONORGESTREL

REACTIONS (4)
  - Complication associated with device [None]
  - Uterine scar [None]
  - Infertility female [None]
  - Muscle spasms [None]

NARRATIVE: CASE EVENT DATE: 20090828
